FAERS Safety Report 6841409-6 (Version None)
Quarter: 2010Q3

REPORT INFORMATION
  Report Type: 
  Country: None (occurrence: None)
  Receive Date: 20100714
  Receipt Date: 20070702
  Transmission Date: 20110219
  Serious: Yes (Other)
  Sender: FDA-Public Use
  Company Number: US-PFIZER INC-2007055785

PATIENT
  Sex: Female
  Weight: 56.2 kg

DRUGS (6)
  1. CHANTIX [Suspect]
     Indication: SMOKING CESSATION THERAPY
     Dates: start: 20070617
  2. ACYCLOVIR [Suspect]
     Indication: ORAL HERPES
  3. EFFEXOR [Concomitant]
  4. TUMS [Concomitant]
  5. ROLAIDS [Concomitant]
  6. MONTEKULAST SODIUM [Concomitant]

REACTIONS (4)
  - DYSPEPSIA [None]
  - NAUSEA [None]
  - SOMNOLENCE [None]
  - ULCER [None]
